FAERS Safety Report 4650122-5 (Version None)
Quarter: 2005Q2

REPORT INFORMATION
  Report Type: 
  Country: None (occurrence: None)
  Receive Date: 20050502
  Receipt Date: 20050420
  Transmission Date: 20051028
  Serious: Yes (Hospitalization)
  Sender: FDA-Public Use
  Company Number: JP-BRISTOL-MYERS SQUIBB COMPANY-12941464

PATIENT
  Age: 72 Year
  Sex: Female

DRUGS (1)
  1. MITOMYCIN-C BULK POWDER [Suspect]
     Indication: PTERYGIUM
     Dosage: RECEIVED APPLICATION ^20 YEARS AGO^.
     Route: 061

REACTIONS (1)
  - SCLEROMALACIA [None]
